FAERS Safety Report 23971476 (Version 1)
Quarter: 2024Q2

REPORT INFORMATION
  Report Type: Spontaneous
  Country: US (occurrence: None)
  Receive Date: 20240612
  Receipt Date: 20240612
  Transmission Date: 20240716
  Serious: No
  Sender: FDA-Public Use
  Company Number: None

PATIENT
  Age: 74 Year
  Sex: Female
  Weight: 80.8 kg

DRUGS (1)
  1. ZOLEDRONIC ACID [Suspect]
     Active Substance: ZOLEDRONIC ACID
     Indication: Osteoporosis
     Dosage: 5 MG ONCE INTRAVENOUS ?
     Route: 042
     Dates: start: 20240529, end: 20240529

REACTIONS (4)
  - Dizziness [None]
  - Nausea [None]
  - Vomiting [None]
  - Arthralgia [None]

NARRATIVE: CASE EVENT DATE: 20240529
